FAERS Safety Report 7454091-4 (Version None)
Quarter: 2011Q2

REPORT INFORMATION
  Report Type: 
  Country: None (occurrence: None)
  Receive Date: 20110503
  Receipt Date: 20110426
  Transmission Date: 20111010
  Serious: Yes (Disabling, Other)
  Sender: FDA-Public Use
  Company Number: FR-AMGEN-FRASP2011005849

PATIENT
  Age: 37 Year
  Sex: Female
  Weight: 110 kg

DRUGS (6)
  1. NEXIUM [Concomitant]
     Indication: PROPHYLAXIS
     Dosage: UNK
     Route: 048
     Dates: start: 20090318
  2. ACETAMINOPHEN AND TRAMADOL HCL [Concomitant]
     Indication: PAIN
     Dosage: 300/3200 MG DAILY
     Route: 048
     Dates: start: 20090527
  3. ENBREL [Suspect]
     Indication: PRODUCT USED FOR UNKNOWN INDICATION
     Dosage: 50 MG, WEEKLY
     Route: 058
     Dates: start: 20090515
  4. VOLTAREN [Concomitant]
     Indication: MUSCULOSKELETAL STIFFNESS
     Dosage: UNK
  5. PREDNISONE [Suspect]
     Indication: SPONDYLITIS
     Dosage: UNK
     Route: 048
     Dates: start: 20090819
  6. VOLTAREN [Concomitant]
     Indication: PAIN
     Dosage: 100 MG, 1X/DAY
     Route: 048
     Dates: start: 20090318

REACTIONS (3)
  - UVEITIS [None]
  - BLINDNESS [None]
  - GLAUCOMA [None]
